FAERS Safety Report 4404690-9 (Version None)
Quarter: 2004Q3

REPORT INFORMATION
  Report Type: 
  Country: None (occurrence: None)
  Receive Date: 20040720
  Receipt Date: 20040216
  Transmission Date: 20050211
  Serious: No
  Sender: FDA-Public Use
  Company Number: LUP-0005 (0) 2004-00638

PATIENT
  Age: 72 Year
  Sex: Female
  Weight: 52.1637 kg

DRUGS (4)
  1. CEFUROXIME AXETIL (CEFUROXIME AXETIL) (500 MILLIGRAM, PILL) [Suspect]
     Indication: SINUSITIS
     Dosage: 500 MG, (500 MG, 1 IN 1 D), ORAL
     Route: 048
     Dates: start: 20040213, end: 20040213
  2. PROTONIX [Concomitant]
  3. ACTONEL [Concomitant]
  4. ALLEGRA [Concomitant]

REACTIONS (3)
  - DIARRHOEA [None]
  - DIZZINESS [None]
  - NAUSEA [None]
